FAERS Safety Report 21674339 (Version 1)
Quarter: 2022Q4

REPORT INFORMATION
  Report Type: Spontaneous
  Country: DE (occurrence: DE)
  Receive Date: 20221202
  Receipt Date: 20221202
  Transmission Date: 20230113
  Serious: Yes (Hospitalization)
  Sender: FDA-Public Use
  Company Number: DE-MYLANLABS-2022M1135077

PATIENT
  Age: 76 Year
  Sex: Male

DRUGS (2)
  1. APIXABAN [Suspect]
     Active Substance: APIXABAN
     Indication: Atrial thrombosis
     Dosage: 5 MILLIGRAM, BID
     Route: 048
  2. PHENPROCOUMON [Suspect]
     Active Substance: PHENPROCOUMON
     Indication: Atrial thrombosis
     Dosage: UNK
     Route: 048

REACTIONS (1)
  - Drug ineffective [Unknown]
